FAERS Safety Report 17516807 (Version 1)
Quarter: 2020Q1

REPORT INFORMATION
  Report Type: Spontaneous
  Country: US (occurrence: US)
  Receive Date: 20200306
  Receipt Date: 20200306
  Transmission Date: 20200409
  Serious: Yes (Death, Life-Threatening)
  Sender: FDA-Public Use
  Company Number: None

PATIENT
  Age: 33 Year
  Sex: Female
  Weight: 72 kg

DRUGS (2)
  1. ANTIDEPRESSANT EFFEXOR 150MG [Concomitant]
  2. AMBIEN [Suspect]
     Active Substance: ZOLPIDEM TARTRATE
     Indication: INSOMNIA
     Dosage: ?          QUANTITY:1 TABLET(S);?
     Route: 048

REACTIONS (4)
  - Sleep talking [None]
  - Middle insomnia [None]
  - Sleep disorder [None]
  - Completed suicide [None]

NARRATIVE: CASE EVENT DATE: 20190211
